FAERS Safety Report 21706877 (Version 2)
Quarter: 2022Q4

REPORT INFORMATION
  Report Type: Spontaneous
  Country: DE (occurrence: DE)
  Receive Date: 20221209
  Receipt Date: 20221227
  Transmission Date: 20230113
  Serious: Yes (Hospitalization)
  Sender: FDA-Public Use
  Company Number: DE-ADRED-05422-01

PATIENT
  Age: 71 Year
  Sex: Male
  Weight: 95 kg

DRUGS (5)
  1. IBUPROFEN [Suspect]
     Active Substance: IBUPROFEN
     Indication: Product used for unknown indication
     Dosage: 600 MILLIGRAM, ON DEMAND, TABLETS
     Route: 048
  2. LISINOPRIL [Concomitant]
     Active Substance: LISINOPRIL
     Indication: Product used for unknown indication
     Dosage: 10 MILLIGRAM, 0.5-0-0-0
     Route: 048
  3. EDOXABAN [Concomitant]
     Active Substance: EDOXABAN
     Indication: Product used for unknown indication
     Dosage: 60 MILLIGRAM, 1-0-0-0
     Route: 048
  4. METAMIZOL [Concomitant]
     Active Substance: METAMIZOLE SODIUM
     Indication: Product used for unknown indication
     Dosage: 20 GTT DROPS, 1-1-1-1,TROPFEN
     Route: 048
  5. METOPROLOL [Concomitant]
     Active Substance: METOPROLOL
     Indication: Product used for unknown indication
     Dosage: TIME-RELEASE TABLETS, EXTENDED-RELEASE TABLETS
     Route: 048

REACTIONS (8)
  - Musculoskeletal pain [Unknown]
  - Angina pectoris [Unknown]
  - Dehydration [Unknown]
  - Thirst [Unknown]
  - Tachycardia [Unknown]
  - Dyspnoea [Unknown]
  - Hypertension [Unknown]
  - Acute kidney injury [Unknown]
